FAERS Safety Report 4765500-3 (Version None)
Quarter: 2005Q3

REPORT INFORMATION
  Report Type: 
  Country: None (occurrence: None)
  Receive Date: 20050912
  Receipt Date: 20050901
  Transmission Date: 20060218
  Serious: Yes (Other)
  Sender: FDA-Public Use
  Company Number: US-JNJFOC-20050900235

PATIENT
  Sex: Female

DRUGS (31)
  1. INFLIXIMAB [Suspect]
     Indication: RHEUMATOID ARTHRITIS
     Route: 042
  2. METHOTREXATE [Concomitant]
  3. PREDNISONE TAB [Concomitant]
  4. PLAQUENIL [Concomitant]
  5. FOLIC ACID [Concomitant]
  6. SOMA [Concomitant]
  7. TYLENOL [Concomitant]
  8. TYLENOL [Concomitant]
  9. TYLENOL [Concomitant]
  10. TYLENOL [Concomitant]
  11. TYLENOL [Concomitant]
  12. TYLENOL [Concomitant]
  13. TYLENOL [Concomitant]
  14. TYLENOL [Concomitant]
  15. TYLENOL [Concomitant]
  16. TYLENOL [Concomitant]
  17. TYLENOL [Concomitant]
  18. SYNTHROID [Concomitant]
  19. GLUCOSAMINE/CHONDROITIN [Concomitant]
  20. GLUCOSAMINE/CHONDROITIN [Concomitant]
  21. GLUCOSAMINE/CHONDROITIN [Concomitant]
  22. GLUCOSAMINE/CHONDROITIN [Concomitant]
  23. CALCIUM GLUCONATE [Concomitant]
  24. MULTI-VITAMINS [Concomitant]
  25. MULTI-VITAMINS [Concomitant]
  26. MULTI-VITAMINS [Concomitant]
  27. MULTI-VITAMINS [Concomitant]
  28. MULTI-VITAMINS [Concomitant]
  29. MULTI-VITAMINS [Concomitant]
  30. MULTI-VITAMINS [Concomitant]
  31. MULTI-VITAMINS [Concomitant]

REACTIONS (1)
  - DEAFNESS NEUROSENSORY [None]
